FAERS Safety Report 9698132 (Version 1)
Quarter: 2013Q4

REPORT INFORMATION
  Report Type: Spontaneous
  Country: US (occurrence: US)
  Receive Date: 20131120
  Receipt Date: 20131120
  Transmission Date: 20140711
  Serious: Yes (Congenital Anomaly)
  Sender: FDA-Public Use
  Company Number: US-ROXANE LABORATORIES, INC.-2013-RO-01839RO

PATIENT
  Sex: 0
  Weight: 2.5 kg

DRUGS (2)
  1. MYCOPHENOLATE MOFETIL [Suspect]
     Indication: EXPOSURE VIA FATHER
  2. TACROLIMUS [Suspect]
     Indication: EXPOSURE VIA FATHER

REACTIONS (1)
  - Pyloric stenosis [Unknown]
